FAERS Safety Report 14196169 (Version 1)
Quarter: 2017Q4

REPORT INFORMATION
  Report Type: Spontaneous
  Country: US (occurrence: US)
  Receive Date: 20171116
  Receipt Date: 20171116
  Transmission Date: 20180321
  Serious: No
  Sender: FDA-Public Use
  Company Number: US-BAUSCH-BL-2017-019847

PATIENT
  Age: 25 Year
  Sex: Male
  Weight: 88.53 kg

DRUGS (4)
  1. XENAZINE [Suspect]
     Active Substance: TETRABENAZINE
     Dosage: 25 MG ONE TABLET IN THE MORNING AND 25 MG HALF TABLET IN THE EVENING (37.5 MG A DAY)
     Route: 048
     Dates: start: 201706
  2. XENAZINE [Suspect]
     Active Substance: TETRABENAZINE
     Route: 048
     Dates: start: 201606
  3. XENAZINE [Suspect]
     Active Substance: TETRABENAZINE
     Indication: DYSTONIA
     Dosage: 12.5 MG BY MOUTH IN THE MORNING AND THE AFTERNOON AND 25 MG IN THE EVENING
     Route: 048
     Dates: start: 201108
  4. XENAZINE [Suspect]
     Active Substance: TETRABENAZINE
     Route: 048

REACTIONS (3)
  - Somnolence [Recovered/Resolved]
  - Prescribed overdose [Recovered/Resolved]
  - Off label use [Not Recovered/Not Resolved]

NARRATIVE: CASE EVENT DATE: 201108
